FAERS Safety Report 11087721 (Version 1)
Quarter: 2015Q2

REPORT INFORMATION
  Report Type: Spontaneous
  Country: US (occurrence: None)
  Receive Date: 20150501
  Receipt Date: 20150501
  Transmission Date: 20150821
  Serious: Yes (Hospitalization)
  Sender: FDA-Public Use
  Company Number: None

PATIENT
  Age: 81 Year
  Sex: Male
  Weight: 80 kg

DRUGS (7)
  1. FLOMAX [Concomitant]
     Active Substance: TAMSULOSIN HYDROCHLORIDE
  2. PREDNISONE. [Concomitant]
     Active Substance: PREDNISONE
  3. ELIQUIS [Suspect]
     Active Substance: APIXABAN
     Indication: ATRIAL FIBRILLATION
     Dosage: 60 BID ORAL
     Route: 048
     Dates: start: 20150424, end: 20150429
  4. COREG [Concomitant]
     Active Substance: CARVEDILOL
  5. SYNTHROID [Concomitant]
     Active Substance: LEVOTHYROXINE SODIUM
  6. NORVASEC [Concomitant]
  7. CEFTIN [Concomitant]
     Active Substance: CEFUROXIME AXETIL

REACTIONS (1)
  - Haematoma [None]

NARRATIVE: CASE EVENT DATE: 20150429
